FAERS Safety Report 17115004 (Version 1)
Quarter: 2019Q4

REPORT INFORMATION
  Report Type: Spontaneous
  Country: US (occurrence: US)
  Receive Date: 20191112
  Receipt Date: 20191112
  Transmission Date: 20200122
  Serious: No
  Sender: FDA-Public Use
  Company Number: None

PATIENT
  Age: 65 Year
  Sex: Female

DRUGS (7)
  1. ESTRA/NORETH [Concomitant]
  2. ORENCIA [Suspect]
     Active Substance: ABATACEPT
     Indication: RHEUMATOID ARTHRITIS
     Route: 058
     Dates: start: 20180104
  3. VITAMIN D [Concomitant]
     Active Substance: VITAMIN D NOS
  4. ADVAIR DISKU AER [Concomitant]
  5. ETODOLAC ER [Concomitant]
     Active Substance: ETODOLAC
  6. LOPREEZA [Concomitant]
     Active Substance: ESTRADIOL\NORETHINDRONE ACETATE
  7. TRIAM/HCTE [Concomitant]

REACTIONS (1)
  - Shoulder operation [None]

NARRATIVE: CASE EVENT DATE: 20191111
